FAERS Safety Report 10944449 (Version 1)
Quarter: 2015Q1

REPORT INFORMATION
  Report Type: Spontaneous
  Country: US (occurrence: None)
  Receive Date: 20150320
  Receipt Date: 20150320
  Transmission Date: 20150721
  Serious: Yes (Hospitalization)
  Sender: FDA-Public Use
  Company Number: None

PATIENT
  Age: 70 Year
  Sex: Female
  Weight: 49.9 kg

DRUGS (2)
  1. DAUNORUBICIN [Suspect]
     Active Substance: DAUNORUBICIN
     Dates: end: 20140927
  2. CYTARABINE. [Suspect]
     Active Substance: CYTARABINE
     Dates: end: 20141001

REACTIONS (4)
  - Lung consolidation [None]
  - Pyrexia [None]
  - Aspergillus test positive [None]
  - Lung infiltration [None]

NARRATIVE: CASE EVENT DATE: 20141009
